FAERS Safety Report 8574597-4 (Version None)
Quarter: 2012Q3

REPORT INFORMATION
  Report Type: 
  Country: None (occurrence: None)
  Receive Date: 20120806
  Receipt Date: 20120724
  Transmission Date: 20120928
  Serious: Yes (Life-Threatening, Hospitalization)
  Sender: FDA-Public Use
  Company Number: NL-MYLANLABS-2012S1013218

PATIENT
  Age: 77 Year
  Sex: Female

DRUGS (2)
  1. CRESTOR [Suspect]
     Indication: PRODUCT USED FOR UNKNOWN INDICATION
     Route: 048
     Dates: start: 20060101, end: 20120530
  2. METFORMIN HCL [Suspect]
     Indication: DIABETES MELLITUS
     Dosage: 2 X1000MG
     Route: 048
     Dates: start: 20030101, end: 20120530

REACTIONS (7)
  - ACUTE PRERENAL FAILURE [None]
  - HYPONATRAEMIA [None]
  - SEPTIC SHOCK [None]
  - THROMBOCYTOPENIA [None]
  - LACTIC ACIDOSIS [None]
  - ENDOCARDITIS [None]
  - ACUTE RESPIRATORY FAILURE [None]
